FAERS Safety Report 6579454-0 (Version None)
Quarter: 2010Q1

REPORT INFORMATION
  Report Type: 
  Country: None (occurrence: None)
  Receive Date: 20100212
  Receipt Date: 20100208
  Transmission Date: 20100710
  Serious: Yes (Other)
  Sender: FDA-Public Use
  Company Number: GB-BRISTOL-MYERS SQUIBB COMPANY-14969810

PATIENT

DRUGS (2)
  1. ABILIFY [Suspect]
  2. OLANZAPINE [Concomitant]

REACTIONS (1)
  - PULMONARY EMBOLISM [None]
